FAERS Safety Report 4411270-8 (Version None)
Quarter: 2004Q2

REPORT INFORMATION
  Report Type: 
  Country: None (occurrence: None)
  Receive Date: 20040630
  Receipt Date: 20040429
  Transmission Date: 20050107
  Serious: No
  Sender: FDA-Public Use
  Company Number: 04P-163-0259189-00

PATIENT
  Age: 64 Year
  Sex: Female
  Weight: 88.4514 kg

DRUGS (13)
  1. HUMIRA [Suspect]
     Indication: RHEUMATOID ARTHRITIS
     Dosage: 40 MG, 1 IN 2 WK, SUBCUTANEOUS
     Route: 058
     Dates: start: 20040415
  2. LEVOTHYROXINE SODIUM [Concomitant]
  3. DYAZIDE [Concomitant]
  4. ATENOLOL [Concomitant]
  5. OMEPRAZOLE [Concomitant]
  6. NAPROXEN SODIUM [Concomitant]
  7. PREDNISONE [Concomitant]
  8. CYCLOBENZAPRINE HYDROCHLORIDE [Concomitant]
  9. PROPACET 100 [Concomitant]
  10. COMBIVENT [Concomitant]
  11. TRIAMCINOLONE ACETONIDE [Concomitant]
  12. CALCIUM WITH VITAMIN D [Concomitant]
  13. CALCITONIN-SALMON [Concomitant]

REACTIONS (1)
  - CONTUSION [None]
